FAERS Safety Report 13557116 (Version 1)
Quarter: 2017Q2

REPORT INFORMATION
  Report Type: Spontaneous
  Country: US (occurrence: US)
  Receive Date: 20170517
  Receipt Date: 20170517
  Transmission Date: 20170830
  Serious: Yes (Other)
  Sender: FDA-Public Use
  Company Number: None

PATIENT
  Age: 84 Year
  Sex: Female
  Weight: 67.05 kg

DRUGS (2)
  1. METFORMIN E.R. [Suspect]
     Active Substance: METFORMIN HYDROCHLORIDE
     Indication: BLOOD GLUCOSE INCREASED
     Route: 048
     Dates: start: 20170419, end: 20170419
  2. GLIPIZIDE XL [Suspect]
     Active Substance: GLIPIZIDE
     Indication: HYPERGLYCAEMIA
     Route: 048
     Dates: start: 20170419, end: 20170419

REACTIONS (1)
  - Blood glucose decreased [None]

NARRATIVE: CASE EVENT DATE: 20170419
